FAERS Safety Report 5107727-7 (Version None)
Quarter: 2006Q3

REPORT INFORMATION
  Report Type: 
  Country: None (occurrence: None)
  Receive Date: 20060919
  Receipt Date: 20060807
  Transmission Date: 20061208
  Serious: Yes (Disabling)
  Sender: FDA-Public Use
  Company Number: 2006GB01379

PATIENT
  Age: 361 Month
  Sex: Female

DRUGS (4)
  1. SEROQUEL [Suspect]
     Indication: BIPOLAR DISORDER
     Route: 048
     Dates: start: 20050501
  2. SEROQUEL [Suspect]
     Dosage: DOSE REDUCED
     Route: 048
  3. SODIUM VALPROATE CHRONO [Concomitant]
     Indication: BIPOLAR DISORDER
     Route: 048
     Dates: start: 20050501
  4. ORAL CONTRACEPTIVE [Concomitant]
     Route: 048

REACTIONS (3)
  - ACUTE SINUSITIS [None]
  - HYPERHIDROSIS [None]
  - THIRST [None]
